FAERS Safety Report 9351628 (Version 1)
Quarter: 2013Q2

REPORT INFORMATION
  Report Type: Spontaneous
  Country: US (occurrence: US)
  Receive Date: 20130617
  Receipt Date: 20130617
  Transmission Date: 20140414
  Serious: No
  Sender: FDA-Public Use
  Company Number: US-PFIZER INC-2013179834

PATIENT
  Age: 40 Year
  Sex: Female
  Weight: 127 kg

DRUGS (5)
  1. GABAPENTIN [Suspect]
     Indication: NEURALGIA
     Dosage: 100 MG, 1X/DAY
  2. GABAPENTIN [Suspect]
     Dosage: 300 MG, 1X/DAY
  3. GABAPENTIN [Suspect]
     Dosage: UNK
  4. GLUCOTROL XL [Suspect]
     Indication: DIABETES MELLITUS
     Dosage: 2.5 MG, 1X/DAY
     Dates: start: 201206
  5. VOLTAREN [Suspect]
     Indication: NEURALGIA
     Dosage: UNK

REACTIONS (2)
  - Drug ineffective [Unknown]
  - Arthralgia [Unknown]
